FAERS Safety Report 5017576-6 (Version None)
Quarter: 2006Q2

REPORT INFORMATION
  Report Type: 
  Country: None (occurrence: None)
  Receive Date: 20060601
  Receipt Date: 20060601
  Transmission Date: 20061013
  Serious: Yes (Hospitalization)
  Sender: FDA-Public Use
  Company Number: None

PATIENT
  Age: 76 Year
  Sex: Male
  Weight: 68.2 kg

DRUGS (14)
  1. BACTRIM DS [Suspect]
     Indication: URINARY TRACT INFECTION
     Dosage: ONE TAB Q 12 HR X 3D THEN ONE TAB QD X 10D
     Dates: start: 20060113, end: 20060126
  2. ALBUTEROL SULFATE AUTOHALER [Concomitant]
  3. FLUNISOLIDE [Concomitant]
  4. HYDROCODONE W/APAP [Concomitant]
  5. FORMOTEROL [Concomitant]
  6. SENNOSIDES [Concomitant]
  7. DILTIAZEM [Concomitant]
  8. DOCUSATE [Concomitant]
  9. FUROSEMIDE [Concomitant]
  10. NIACIN [Concomitant]
  11. OMEPRAZOLE [Concomitant]
  12. OXYBUTYNIN [Concomitant]
  13. SIMVASTATIN [Concomitant]
  14. APAP TAB [Concomitant]

REACTIONS (2)
  - NEPHRITIS INTERSTITIAL [None]
  - RENAL FAILURE ACUTE [None]
